FAERS Safety Report 11967932 (Version 1)
Quarter: 2016Q1

REPORT INFORMATION
  Report Type: Report from Study
  Country: US (occurrence: US)
  Receive Date: 20160127
  Receipt Date: 20160127
  Transmission Date: 20160526
  Serious: Yes (Other)
  Sender: FDA-Public Use
  Company Number: US-ABBVIE-15K-163-1386578-00

PATIENT
  Sex: Female

DRUGS (3)
  1. HUMIRA [Suspect]
     Active Substance: ADALIMUMAB
     Route: 058
  2. HUMIRA [Suspect]
     Active Substance: ADALIMUMAB
     Route: 058
     Dates: start: 20150430
  3. HUMIRA [Suspect]
     Active Substance: ADALIMUMAB
     Indication: PSORIASIS
     Route: 058
     Dates: start: 201412

REACTIONS (11)
  - Influenza [Recovered/Resolved]
  - Peripheral swelling [Not Recovered/Not Resolved]
  - Sinus operation [Unknown]
  - Dyspnoea [Recovered/Resolved]
  - Generalised oedema [Not Recovered/Not Resolved]
  - Hypertension [Recovered/Resolved]
  - Arthralgia [Not Recovered/Not Resolved]
  - Psoriatic arthropathy [Unknown]
  - Weight increased [Not Recovered/Not Resolved]
  - Dyspnoea [Not Recovered/Not Resolved]
  - Psoriasis [Not Recovered/Not Resolved]
